FAERS Safety Report 18227119 (Version 7)
Quarter: 2022Q2

REPORT INFORMATION
  Report Type: Spontaneous
  Country: US (occurrence: US)
  Receive Date: 20200903
  Receipt Date: 20220601
  Transmission Date: 20220721
  Serious: No
  Sender: FDA-Public Use
  Company Number: US-PFIZER INC-2020340771

PATIENT
  Age: 55 Year
  Sex: Female

DRUGS (2)
  1. XELJANZ XR [Suspect]
     Active Substance: TOFACITINIB CITRATE
     Indication: Rheumatoid arthritis
     Dosage: 11 MG, DAILY
     Route: 048
     Dates: start: 201901
  2. XELJANZ XR [Suspect]
     Active Substance: TOFACITINIB CITRATE
     Dosage: 11 MG, 1X/DAY
     Route: 048
     Dates: start: 2019

REACTIONS (10)
  - Product dose omission issue [Unknown]
  - Epistaxis [Recovered/Resolved]
  - Pain [Not Recovered/Not Resolved]
  - Tendonitis [Unknown]
  - Loss of personal independence in daily activities [Not Recovered/Not Resolved]
  - Hypertension [Unknown]
  - Blood cholesterol abnormal [Unknown]
  - Influenza like illness [Unknown]
  - Arthralgia [Unknown]
  - Tendon pain [Unknown]

NARRATIVE: CASE EVENT DATE: 20190101
